FAERS Safety Report 11317532 (Version 1)
Quarter: 2015Q3

REPORT INFORMATION
  Report Type: Report from Study
  Country: DE (occurrence: DE)
  Receive Date: 20150728
  Receipt Date: 20150728
  Transmission Date: 20151125
  Serious: Yes (Hospitalization, Other)
  Sender: FDA-Public Use
  Company Number: DE-ABBVIE-15K-062-1422053-00

PATIENT
  Sex: Female
  Weight: 80 kg

DRUGS (1)
  1. HUMIRA [Suspect]
     Active Substance: ADALIMUMAB
     Indication: CROHN^S DISEASE
     Route: 058
     Dates: start: 20120201, end: 20150528

REACTIONS (7)
  - Post procedural complication [Recovering/Resolving]
  - Impaired healing [Recovering/Resolving]
  - Asthenia [Unknown]
  - Abdominal wall abscess [Recovering/Resolving]
  - Anastomotic complication [Recovering/Resolving]
  - Intestinal anastomosis [Unknown]
  - Abscess intestinal [Recovering/Resolving]

NARRATIVE: CASE EVENT DATE: 2015
